FAERS Safety Report 4554060-8 (Version None)
Quarter: 2005Q1

REPORT INFORMATION
  Report Type: 
  Country: None (occurrence: None)
  Receive Date: 20050113
  Receipt Date: 20050113
  Transmission Date: 20050727
  Serious: Yes (Death)
  Sender: FDA-Public Use
  Company Number: None

PATIENT
  Age: 35 Year
  Sex: Male

DRUGS (4)
  1. WELLBUTRIN [Suspect]
  2. LITHIUM [Concomitant]
  3. LAMICTAL [Concomitant]
  4. WELLBUTRIN [Concomitant]

REACTIONS (4)
  - GUN SHOT WOUND [None]
  - INSOMNIA [None]
  - INTENTIONAL SELF-INJURY [None]
  - MANIA [None]
